FAERS Safety Report 4632350-8 (Version None)
Quarter: 2005Q2

REPORT INFORMATION
  Report Type: 
  Country: None (occurrence: None)
  Receive Date: 20050331
  Receipt Date: 20050207
  Transmission Date: 20051028
  Serious: Yes (Other)
  Sender: FDA-Public Use
  Company Number: 20050207

PATIENT
  Age: 13 Month
  Sex: Female
  Weight: 9.9791 kg

DRUGS (1)
  1. ALINIA FOR ORAL SUSPENSION, 100 MG/5 ML [Suspect]
     Indication: DIARRHOEA
     Dosage: 100 MG X 2, ROUTE 047
     Dates: start: 20050201

REACTIONS (1)
  - RASH [None]
